FAERS Safety Report 6916483-9 (Version None)
Quarter: 2010Q3

REPORT INFORMATION
  Report Type: 
  Country: None (occurrence: None)
  Receive Date: 20100810
  Receipt Date: 20100804
  Transmission Date: 20110219
  Serious: Yes (Death, Other)
  Sender: FDA-Public Use
  Company Number: PHHY2010NZ02179

PATIENT
  Sex: Male

DRUGS (6)
  1. CLOZARIL [Suspect]
     Indication: SCHIZOPHRENIA
     Dosage: 125 MG DAILY
     Dates: start: 20090730
  2. RISPERDAL CONSTA [Concomitant]
     Dosage: 62.5 MG/1ML
  3. METFORMIN HCL [Concomitant]
  4. GLIPIZIDE [Concomitant]
  5. PIOGLITAZONE [Concomitant]
  6. ASPIRIN [Concomitant]

REACTIONS (4)
  - LOWER RESPIRATORY TRACT INFECTION [None]
  - MALAISE [None]
  - MYOCARDIAL INFARCTION [None]
  - UPPER RESPIRATORY TRACT INFECTION [None]
